FAERS Safety Report 16038527 (Version 3)
Quarter: 2019Q2

REPORT INFORMATION
  Report Type: Spontaneous
  Country: US (occurrence: US)
  Receive Date: 20190305
  Receipt Date: 20190529
  Transmission Date: 20190711
  Serious: Yes (Other)
  Sender: FDA-Public Use
  Company Number: US-SA-2019SA060001

PATIENT
  Age: 65 Year
  Sex: Female
  Weight: 87 kg

DRUGS (7)
  1. RANITIDINE. [Concomitant]
     Active Substance: RANITIDINE
     Dosage: UNK
     Dates: start: 19990615
  2. XELJANZ XR [Suspect]
     Active Substance: TOFACITINIB CITRATE
     Indication: RHEUMATOID ARTHRITIS
     Dosage: 11 MG, QD
     Route: 048
     Dates: start: 20180315
  3. MINOCYCLINE [Concomitant]
     Active Substance: MINOCYCLINE\MINOCYCLINE HYDROCHLORIDE
     Dosage: UNK
     Dates: start: 19990615, end: 20050808
  4. ARAVA [Suspect]
     Active Substance: LEFLUNOMIDE
     Dosage: 20 MG, QD
     Route: 048
  5. PLAQUENIL [Suspect]
     Active Substance: HYDROXYCHLOROQUINE SULFATE
     Indication: RHEUMATOID ARTHRITIS
     Dosage: UNK UNK, UNK
  6. CHOLINE SALICYLATE W/MAGNESIUM SALICYLATE [Concomitant]
     Dosage: UNK
     Dates: start: 19990615
  7. ARAVA [Suspect]
     Active Substance: LEFLUNOMIDE
     Indication: RHEUMATOID ARTHRITIS
     Dosage: 100 MG, QW
     Dates: start: 20050509

REACTIONS (19)
  - Emotional disorder [Recovered/Resolved]
  - Impaired work ability [Unknown]
  - Pulmonary embolism [Unknown]
  - Crying [Recovered/Resolved]
  - Oxygen therapy [Unknown]
  - Asthma [Unknown]
  - Hot flush [Recovered/Resolved]
  - Chest discomfort [Unknown]
  - Dyspnoea [Unknown]
  - Pulmonary embolism [Recovered/Resolved with Sequelae]
  - Acquired pigmented retinopathy [Not Recovered/Not Resolved]
  - Hypoxia [Unknown]
  - Malaise [Unknown]
  - Benign ovarian tumour [Unknown]
  - Urinary tract infection [Recovered/Resolved]
  - Nasopharyngitis [Recovered/Resolved]
  - Gastrointestinal disorder [Recovered/Resolved]
  - Chills [Recovered/Resolved]
  - Cough [Unknown]

NARRATIVE: CASE EVENT DATE: 200506
